FAERS Safety Report 10475708 (Version 2)
Quarter: 2014Q3

REPORT INFORMATION
  Report Type: Spontaneous
  Country: US (occurrence: US)
  Receive Date: 20140925
  Receipt Date: 20140925
  Transmission Date: 20150326
  Serious: No
  Sender: FDA-Public Use
  Company Number: US-PFIZER INC-2014223474

PATIENT
  Age: 17 Year
  Sex: Female

DRUGS (2)
  1. MEDROXYPROGESTERONE ACETATE. [Suspect]
     Active Substance: MEDROXYPROGESTERONE ACETATE
     Dosage: 150 MG/ML, UNK
     Route: 030
     Dates: start: 20140502, end: 20140502
  2. DEPO-PROVERA [Suspect]
     Active Substance: MEDROXYPROGESTERONE ACETATE
     Dosage: 104, UNK
     Route: 058

REACTIONS (2)
  - Muscle spasms [Recovered/Resolved]
  - Drug dispensing error [Unknown]
